FAERS Safety Report 14254749 (Version 1)
Quarter: 2017Q4

REPORT INFORMATION
  Report Type: Spontaneous
  Country: US (occurrence: US)
  Receive Date: 20171206
  Receipt Date: 20171206
  Transmission Date: 20180321
  Serious: No
  Sender: FDA-Public Use
  Company Number: US-SHIRE-US201730872

PATIENT

DRUGS (2)
  1. XIIDRA [Suspect]
     Active Substance: LIFITEGRAST
     Indication: DRY EYE
  2. XIIDRA [Suspect]
     Active Substance: LIFITEGRAST
     Indication: OCULAR ROSACEA
     Route: 065

REACTIONS (3)
  - Dysgeusia [Unknown]
  - Instillation site pain [Unknown]
  - Product physical issue [Unknown]
